FAERS Safety Report 13492223 (Version 1)
Quarter: 2017Q2

REPORT INFORMATION
  Report Type: Spontaneous
  Country: US (occurrence: US)
  Receive Date: 20170427
  Receipt Date: 20170427
  Transmission Date: 20170830
  Serious: No
  Sender: FDA-Public Use
  Company Number: US-PFIZER INC-2017070908

PATIENT
  Age: 15 Year
  Sex: Male

DRUGS (5)
  1. LACTAID [Concomitant]
     Active Substance: LACTASE
     Dosage: 3000 IU, 1X/DAY  (1 TAKE BEFORE MEALS CONTAINING LACTOSE)
     Route: 048
     Dates: start: 20160330
  2. ZYRTEC [Concomitant]
     Active Substance: CETIRIZINE HYDROCHLORIDE
     Dosage: 10 MG, AS NEEDED
     Route: 048
  3. DICYCLOMINE HCL HEXAL [Concomitant]
     Dosage: 10 MG, AS NEEDED (FOUR TIMES DAILY)
     Route: 048
     Dates: start: 20160330
  4. GENOTROPIN [Suspect]
     Active Substance: SOMATROPIN
     Dosage: 1.6 MG, DAILY
     Dates: start: 20160622
  5. GENOTROPIN [Suspect]
     Active Substance: SOMATROPIN
     Indication: BODY HEIGHT BELOW NORMAL
     Dosage: 1.6 MG, DAILY
     Route: 058
     Dates: end: 201402

REACTIONS (6)
  - Vision blurred [Unknown]
  - Arthralgia [Unknown]
  - Injection site reaction [Unknown]
  - Abdominal pain [Recovered/Resolved]
  - Headache [Unknown]
  - Drug dose omission [Unknown]
